FAERS Safety Report 17614862 (Version 1)
Quarter: 2020Q2

REPORT INFORMATION
  Report Type: Other
  Country: GB (occurrence: GB)
  Receive Date: 20200402
  Receipt Date: 20200402
  Transmission Date: 20200713
  Serious: Yes (Other)
  Sender: FDA-Public Use
  Company Number: GB-EMCURE PHARMACEUTICALS LTD-2020-EPL-000366

PATIENT
  Age: 70 Year
  Sex: Female
  Weight: 65 kg

DRUGS (8)
  1. ZOLEDRONIC ACID [Suspect]
     Active Substance: ZOLEDRONIC ACID
     Indication: OSTEOPOROSIS
     Dosage: 5 MILLIGRAM
     Route: 042
     Dates: start: 20190208, end: 20200212
  2. FLIXOTIDE [Concomitant]
     Active Substance: FLUTICASONE PROPIONATE
     Dosage: UNK
  3. TOPAMAX [Concomitant]
     Active Substance: TOPIRAMATE
     Dosage: UNK
  4. BRICANYL [Concomitant]
     Active Substance: TERBUTALINE SULFATE
     Dosage: UNK
  5. CALCICHEW D3 [Concomitant]
     Active Substance: CALCIUM\CHOLECALCIFEROL
     Dosage: UNK
  6. LANSOPRAZOLE. [Concomitant]
     Active Substance: LANSOPRAZOLE
     Dosage: UNK
  7. ATORVASTATIN [Concomitant]
     Active Substance: ATORVASTATIN
     Dosage: UNK
  8. PREDNISOLONE. [Concomitant]
     Active Substance: PREDNISOLONE
     Dosage: UNK

REACTIONS (3)
  - Peripheral swelling [Unknown]
  - Deep vein thrombosis [Recovered/Resolved]
  - Pain in extremity [Recovered/Resolved]

NARRATIVE: CASE EVENT DATE: 20200214
